FAERS Safety Report 6933770-9 (Version None)
Quarter: 2010Q3

REPORT INFORMATION
  Report Type: 
  Country: None (occurrence: None)
  Receive Date: 20100820
  Receipt Date: 20100810
  Transmission Date: 20110219
  Serious: Yes (Other)
  Sender: FDA-Public Use
  Company Number: BR-PFIZER INC-2010100792

PATIENT
  Age: 52 Year
  Sex: Female
  Weight: 73 kg

DRUGS (4)
  1. CHAMPIX [Suspect]
     Indication: TOBACCO USER
     Dosage: UNK
     Route: 048
     Dates: start: 20090101, end: 20090101
  2. ALPRAZOLAM [Concomitant]
     Indication: ANXIETY
     Dosage: 2 MG, 1X/DAY
     Dates: start: 20080101
  3. ALPRAZOLAM [Concomitant]
     Indication: INSOMNIA
  4. FLUOXETINE [Concomitant]

REACTIONS (3)
  - APATHY [None]
  - SELF ESTEEM DECREASED [None]
  - WEIGHT INCREASED [None]
